FAERS Safety Report 5520593-0 (Version None)
Quarter: 2007Q4

REPORT INFORMATION
  Report Type: 
  Country: None (occurrence: None)
  Receive Date: 20071119
  Receipt Date: 20071112
  Transmission Date: 20080405
  Serious: Yes (Other)
  Sender: FDA-Public Use
  Company Number: US-BRISTOL-MYERS SQUIBB COMPANY-13979372

PATIENT
  Age: 3 Year
  Sex: Male

DRUGS (4)
  1. CARBOPLATIN [Suspect]
     Indication: RETINOBLASTOMA BILATERAL
     Route: 057
  2. VINCRISTINE SULFATE [Suspect]
     Indication: RETINOBLASTOMA BILATERAL
  3. ETOPOSIDE [Suspect]
     Indication: RETINOBLASTOMA BILATERAL
  4. RADIOTHERAPY [Suspect]
     Indication: RETINOBLASTOMA BILATERAL
     Dosage: DOSAGE UNIT: CGY

REACTIONS (1)
  - MALIGNANT MELANOMA [None]
